FAERS Safety Report 8076730-X (Version None)
Quarter: 2012Q1

REPORT INFORMATION
  Report Type: 
  Country: None (occurrence: None)
  Receive Date: 20120127
  Receipt Date: 20120119
  Transmission Date: 20120608
  Serious: Yes (Other)
  Sender: FDA-Public Use
  Company Number: CHPA2012US001743

PATIENT
  Sex: Female

DRUGS (1)
  1. EXCEDRIN (MIGRAINE) [Suspect]
     Indication: HEADACHE
     Dosage: 2 DF, PRN
     Route: 048

REACTIONS (5)
  - SPINAL FRACTURE [None]
  - ROAD TRAFFIC ACCIDENT [None]
  - DRUG INEFFECTIVE [None]
  - THERAPEUTIC RESPONSE UNEXPECTED [None]
  - DRUG INEFFECTIVE FOR UNAPPROVED INDICATION [None]
